FAERS Safety Report 6096954-0 (Version None)
Quarter: 2009Q1

REPORT INFORMATION
  Report Type: 
  Country: None (occurrence: None)
  Receive Date: 20090225
  Receipt Date: 20090225
  Transmission Date: 20090719
  Serious: Yes (Hospitalization)
  Sender: FDA-Public Use
  Company Number: None

PATIENT
  Sex: Female
  Weight: 113.3993 kg

DRUGS (2)
  1. BENICAR [Suspect]
     Indication: HYPERTENSION
     Dosage: 40 MG 1 X DAILY BY MOUTH
     Route: 048
     Dates: start: 20050301, end: 20050901
  2. BENICAR [Suspect]
     Indication: HYPERTENSION
     Dosage: 5 MG 1 X DAILY BY MOUTH
     Route: 048
     Dates: start: 20090209

REACTIONS (13)
  - ASTHENIA [None]
  - COUGH [None]
  - DIARRHOEA [None]
  - DYSGEUSIA [None]
  - FEELING ABNORMAL [None]
  - HEADACHE [None]
  - ORAL HERPES [None]
  - PALPITATIONS [None]
  - PAROSMIA [None]
  - PNEUMONIA [None]
  - REACTION TO COLOURING [None]
  - VOMITING [None]
  - WHEEZING [None]
